FAERS Safety Report 7860422-3 (Version None)
Quarter: 2011Q4

REPORT INFORMATION
  Report Type: 
  Country: None (occurrence: None)
  Receive Date: 20111026
  Receipt Date: 20111018
  Transmission Date: 20120403
  Serious: Yes (Death)
  Sender: FDA-Public Use
  Company Number: CIP-2011-00855

PATIENT

DRUGS (3)
  1. CARBOPLATIN [Suspect]
     Indication: GLIOBLASTOMA
     Dosage: 4 MG/ML-MIN (DAY 1 OF EVERY 28 DAYCYCLE)
  2. BEVACIZUMAB [Concomitant]
  3. IRINOTECAN HCL [Suspect]
     Indication: GLIOBLASTOMA
     Dosage: (DAYS 1 AND 14 OF EVERY 28 DAY CYCLE)

REACTIONS (1)
  - INTESTINAL PERFORATION [None]
